FAERS Safety Report 11288392 (Version 2)
Quarter: 2016Q1

REPORT INFORMATION
  Report Type: Spontaneous
  Country: US (occurrence: US)
  Receive Date: 20150721
  Receipt Date: 20160125
  Transmission Date: 20160525
  Serious: No
  Sender: FDA-Public Use
  Company Number: US-UNITED THERAPEUTICS-UNT-2015-002940

PATIENT
  Sex: Male
  Weight: 97.51 kg

DRUGS (3)
  1. REMODULIN [Suspect]
     Active Substance: TREPROSTINIL
     Dosage: 0.125 ?G/KG, CONTINUING
     Route: 041
     Dates: start: 20130524
  2. REVATIO [Concomitant]
     Active Substance: SILDENAFIL CITRATE
     Indication: PRODUCT USED FOR UNKNOWN INDICATION
  3. REMODULIN [Suspect]
     Active Substance: TREPROSTINIL
     Indication: PULMONARY ARTERIAL HYPERTENSION
     Dosage: 0.123 ?G/KG, CONTINUING
     Route: 041
     Dates: start: 20130524

REACTIONS (7)
  - Malaise [Unknown]
  - Thrombosis in device [Unknown]
  - Myalgia [Unknown]
  - Drug dose omission [Unknown]
  - Dyspnoea exertional [Not Recovered/Not Resolved]
  - Pallor [Unknown]
  - Device issue [Unknown]
